FAERS Safety Report 5658968-1 (Version None)
Quarter: 2008Q1

REPORT INFORMATION
  Report Type: 
  Country: None (occurrence: None)
  Receive Date: 20080310
  Receipt Date: 20070726
  Transmission Date: 20080703
  Serious: No
  Sender: FDA-Public Use
  Company Number: US-BAYER-200711538BCC

PATIENT
  Age: 77 Year
  Sex: Male
  Weight: 81 kg

DRUGS (6)
  1. ALEVE [Suspect]
     Route: 048
     Dates: start: 20070501
  2. LEVOTHROID [Concomitant]
  3. HYDROCHLOROTHIAZIDE [Concomitant]
  4. ATENOLOL [Concomitant]
  5. K-TAB [Concomitant]
  6. IRON SUPPLEMENT [Concomitant]

REACTIONS (5)
  - FLUSHING [None]
  - MUSCLE SPASMS [None]
  - RHINORRHOEA [None]
  - SNEEZING [None]
  - SWELLING FACE [None]
